FAERS Safety Report 24293896 (Version 1)
Quarter: 2024Q3

REPORT INFORMATION
  Report Type: Spontaneous
  Country: US (occurrence: None)
  Receive Date: 20240906
  Receipt Date: 20240906
  Transmission Date: 20241016
  Serious: No
  Sender: DOMPE FARMACEUTICI
  Company Number: US-FARMAPROD-202403-0810

PATIENT
  Sex: Male

DRUGS (4)
  1. OXERVATE [Suspect]
     Active Substance: CENEGERMIN-BKBJ
     Indication: Product used for unknown indication
     Dosage: ONLY RIGHT EYE
     Route: 047
     Dates: start: 20210107, end: 20210216
  2. OXERVATE [Suspect]
     Active Substance: CENEGERMIN-BKBJ
     Dosage: FOR BOTH EYES
     Route: 047
     Dates: start: 20240111
  3. POLYMYXIN B SUL-TRIMETHOPRIM [Concomitant]
  4. PREDNISONE [Concomitant]
     Active Substance: PREDNISONE
     Dosage: 5 MG/5 ML

REACTIONS (3)
  - Product storage error [Unknown]
  - Intentional product misuse [Unknown]
  - Treatment delayed [Unknown]
